FAERS Safety Report 13261498 (Version 1)
Quarter: 2017Q1

REPORT INFORMATION
  Report Type: Spontaneous
  Country: CZ (occurrence: CZ)
  Receive Date: 20170222
  Receipt Date: 20170222
  Transmission Date: 20170428
  Serious: Yes (Hospitalization)
  Sender: FDA-Public Use
  Company Number: CZ-FRESENIUS KABI-FK201701409

PATIENT
  Age: 69 Year
  Sex: Male

DRUGS (15)
  1. FRAXIPARINE [Concomitant]
     Active Substance: NADROPARIN CALCIUM
  2. CEFUROXIM FRESENIUS 1500 MG [Suspect]
     Active Substance: CEFUROXIME
     Indication: CHOLECYSTITIS
     Route: 042
     Dates: start: 20170116, end: 20170118
  3. MORPHIN [Concomitant]
     Active Substance: MORPHINE
  4. ROCALTROL [Concomitant]
     Active Substance: CALCITRIOL
  5. KALNORMIN [Concomitant]
     Active Substance: POTASSIUM CHLORIDE
  6. MAGNOSOLV [Concomitant]
  7. AGEN [Concomitant]
  8. CORDARONE [Concomitant]
     Active Substance: AMIODARONE HYDROCHLORIDE
  9. GODASAL [Concomitant]
     Active Substance: ASPIRIN\GLYCINE
  10. PARACETAMOL [Concomitant]
     Active Substance: ACETAMINOPHEN
  11. CALCICHEW [Concomitant]
     Active Substance: CALCIUM CARBONATE
  12. TORVACARD [Concomitant]
     Active Substance: ATORVASTATIN CALCIUM
  13. APIDRA [Concomitant]
     Active Substance: INSULIN GLULISINE
  14. LANTUS [Concomitant]
     Active Substance: INSULIN GLARGINE
  15. FURON [Concomitant]
     Active Substance: FUROSEMIDE

REACTIONS (5)
  - Hypertension [Recovered/Resolved]
  - Tachyarrhythmia [Recovered/Resolved]
  - Oxygen saturation decreased [Recovered/Resolved]
  - Hyperhidrosis [Recovered/Resolved]
  - Rash generalised [Recovered/Resolved]

NARRATIVE: CASE EVENT DATE: 20170118
